FAERS Safety Report 4319270-3 (Version None)
Quarter: 2004Q1

REPORT INFORMATION
  Report Type: 
  Country: None (occurrence: None)
  Receive Date: 20040316
  Receipt Date: 20040302
  Transmission Date: 20041129
  Serious: Yes (Life-Threatening, Other)
  Sender: FDA-Public Use
  Company Number: 20040300198

PATIENT
  Age: 62 Year
  Sex: Female
  Weight: 61 kg

DRUGS (9)
  1. ISOFLURANE [Suspect]
     Indication: ANAESTHESIA
  2. PROPOFOL [Concomitant]
  3. SUFENTANIL [Concomitant]
  4. ATRACURIUM BESYLATE [Concomitant]
  5. OXYGEN [Concomitant]
  6. CEFUROXIME [Concomitant]
  7. CLINDAMYCIN HCL [Concomitant]
  8. DEXAMETHASONE [Concomitant]
  9. MORPHINE [Concomitant]

REACTIONS (2)
  - MUSCLE TWITCHING [None]
  - MUSCULAR WEAKNESS [None]
